FAERS Safety Report 17527246 (Version 1)
Quarter: 2020Q1

REPORT INFORMATION
  Report Type: Spontaneous
  Country: US (occurrence: US)
  Receive Date: 20200311
  Receipt Date: 20200311
  Transmission Date: 20200409
  Serious: Yes (Other)
  Sender: FDA-Public Use
  Company Number: US-PFIZER INC-2020105279

PATIENT
  Age: 52 Year
  Sex: Female
  Weight: 64.86 kg

DRUGS (3)
  1. LEVOTHYROXINE. [Concomitant]
     Active Substance: LEVOTHYROXINE
     Indication: THYROID DISORDER
     Dosage: 112 UG, UNK
  2. LYRICA [Suspect]
     Active Substance: PREGABALIN
     Indication: FIBROMYALGIA
     Dosage: 50 MG, 1X/DAY [ONE AT NIGHT TIME]
  3. LYRICA [Suspect]
     Active Substance: PREGABALIN
     Indication: SLEEP DISORDER

REACTIONS (2)
  - Neoplasm malignant [Unknown]
  - Tremor [Unknown]

NARRATIVE: CASE EVENT DATE: 2015
